FAERS Safety Report 16760507 (Version 1)
Quarter: 2019Q3

REPORT INFORMATION
  Report Type: Spontaneous
  Country: JP (occurrence: JP)
  Receive Date: 20190830
  Receipt Date: 20190830
  Transmission Date: 20191005
  Serious: Yes (Other)
  Sender: FDA-Public Use
  Company Number: JP-MTPC-MTPC2019-0064933

PATIENT

DRUGS (2)
  1. RADICUT INJ. 30MG [Suspect]
     Active Substance: EDARAVONE
     Route: 041
  2. ARGATROBAN. [Suspect]
     Active Substance: ARGATROBAN
     Dosage: 60 MILLIGRAM, QD
     Route: 041

REACTIONS (2)
  - Cerebral infarction [Unknown]
  - Muscular weakness [Unknown]
